FAERS Safety Report 5558357-4 (Version None)
Quarter: 2007Q4

REPORT INFORMATION
  Report Type: 
  Country: None (occurrence: None)
  Receive Date: 20071214
  Receipt Date: 20071204
  Transmission Date: 20080405
  Serious: Yes (Other)
  Sender: FDA-Public Use
  Company Number: US-PFIZER INC-2007101869

PATIENT
  Age: 72 Year
  Sex: Female

DRUGS (1)
  1. LIPITOR [Suspect]
     Dosage: DAILY DOSE:20MG
     Route: 048

REACTIONS (4)
  - ANOREXIA [None]
  - ASTHENIA [None]
  - MENTAL IMPAIRMENT [None]
  - SPEECH DISORDER [None]
